FAERS Safety Report 15678352 (Version 1)
Quarter: 2018Q4

REPORT INFORMATION
  Report Type: Spontaneous
  Country: US (occurrence: US)
  Receive Date: 20181201
  Receipt Date: 20181201
  Transmission Date: 20190205
  Serious: Yes (Other)
  Sender: FDA-Public Use
  Company Number: US-TEVA-2018-US-981474

PATIENT
  Age: 74 Year
  Sex: Female

DRUGS (1)
  1. PROPAFENONE HCL [Suspect]
     Active Substance: PROPAFENONE HYDROCHLORIDE
     Indication: ATRIAL FIBRILLATION
     Dosage: 4 DOSAGE FORMS DAILY; 2 TABLETS IN THE MORNING AND 2 TABLETS AT NIGHT, 1 DF=1 TAB
     Dates: start: 2013

REACTIONS (2)
  - Urticaria [Unknown]
  - Malignant neoplasm of eye [Recovered/Resolved]

NARRATIVE: CASE EVENT DATE: 20170117
